FAERS Safety Report 14799926 (Version 1)
Quarter: 2018Q2

REPORT INFORMATION
  Report Type: Spontaneous
  Country: US (occurrence: US)
  Receive Date: 20180424
  Receipt Date: 20180424
  Transmission Date: 20180711
  Serious: No
  Sender: FDA-Public Use
  Company Number: US-GLAXOSMITHKLINE-US2018069564

PATIENT
  Age: 48 Year
  Sex: Female

DRUGS (10)
  1. CORTIZONE 10 [Concomitant]
     Active Substance: HYDROCORTISONE
  2. FOLIC ACID. [Concomitant]
     Active Substance: FOLIC ACID
  3. METHOTREXATE. [Concomitant]
     Active Substance: METHOTREXATE
  4. BENLYSTA [Suspect]
     Active Substance: BELIMUMAB
     Indication: SYSTEMIC LUPUS ERYTHEMATOSUS
     Dosage: 200 MG, WE
     Route: 058
     Dates: start: 20180406
  5. PREVACID [Concomitant]
     Active Substance: LANSOPRAZOLE
  6. TOPIRAMATE. [Concomitant]
     Active Substance: TOPIRAMATE
  7. TRAMADOL. [Concomitant]
     Active Substance: TRAMADOL
  8. GABAPENTIN. [Concomitant]
     Active Substance: GABAPENTIN
  9. PLAQUENIL [Concomitant]
     Active Substance: HYDROXYCHLOROQUINE SULFATE
  10. CLOBETASOL FOAM [Concomitant]

REACTIONS (3)
  - Pain [Unknown]
  - Malaise [Unknown]
  - Drug effect decreased [Unknown]

NARRATIVE: CASE EVENT DATE: 201804
